FAERS Safety Report 24294135 (Version 1)
Quarter: 2024Q3

REPORT INFORMATION
  Report Type: Spontaneous
  Country: US (occurrence: None)
  Receive Date: 20240906
  Receipt Date: 20240906
  Transmission Date: 20241017
  Serious: No
  Sender: DOMPE FARMACEUTICI
  Company Number: US-FARMAPROD-202308-202405-1882

PATIENT
  Sex: Female

DRUGS (11)
  1. OXERVATE [Suspect]
     Active Substance: CENEGERMIN-BKBJ
     Indication: Neurotrophic keratopathy
     Route: 047
     Dates: start: 20240502
  2. MAGNESIUM [Concomitant]
     Active Substance: MAGNESIUM
  3. VITAMIN C [Concomitant]
     Active Substance: ASCORBIC ACID
  4. VITAMIN B12 [Concomitant]
     Active Substance: CYANOCOBALAMIN
  5. VITAMIN D3 [Concomitant]
     Active Substance: CHOLECALCIFEROL
  6. LUMIFY [Concomitant]
     Active Substance: BRIMONIDINE TARTRATE
  7. OCUSOFT [Concomitant]
     Dosage: LID SCRUB FOAM (ML)
  8. SYSTANE GEL [Concomitant]
     Dosage: 0.3 %-0.4% DROPS
  9. REFRESH TEARS [Concomitant]
     Active Substance: CARBOXYMETHYLCELLULOSE SODIUM
  10. RESTASIS [Concomitant]
     Active Substance: CYCLOSPORINE
  11. RINVOQ [Concomitant]
     Active Substance: UPADACITINIB
     Dosage: 24 HOURS

REACTIONS (1)
  - Wrong technique in product usage process [Unknown]
